FAERS Safety Report 5220523-5 (Version None)
Quarter: 2007Q1

REPORT INFORMATION
  Report Type: 
  Country: None (occurrence: None)
  Receive Date: 20070125
  Receipt Date: 20070125
  Transmission Date: 20070707
  Serious: Yes (Hospitalization)
  Sender: FDA-Public Use
  Company Number: None

PATIENT
  Sex: Female
  Weight: 83.0083 kg

DRUGS (12)
  1. LASIX [Suspect]
     Indication: CARDIAC FAILURE CONGESTIVE
     Dosage: 80MG PO QD PRIOR TO ADMISSION
     Route: 048
  2. ZAROXOLYN [Suspect]
     Indication: CARDIAC FAILURE CONGESTIVE
     Dosage: 2.5 MG PO Q WEEK PRIOR TO ADMISSION
     Route: 048
  3. COMBIVENT [Concomitant]
  4. AVAPRO [Concomitant]
  5. TYLENOL [Concomitant]
  6. SINGULAIR [Concomitant]
  7. COLCHICINE [Concomitant]
  8. COUMADIN [Concomitant]
  9. ALBUTEROL [Concomitant]
  10. AMIODARONE HCL [Concomitant]
  11. IMDUR [Concomitant]
  12. LEVOTHYROXINE SODIUM [Concomitant]

REACTIONS (1)
  - HYPONATRAEMIA [None]
